FAERS Safety Report 8571033-9 (Version None)
Quarter: 2012Q3

REPORT INFORMATION
  Report Type: 
  Country: None (occurrence: None)
  Receive Date: 20120806
  Receipt Date: 20120730
  Transmission Date: 20120928
  Serious: Yes (Other)
  Sender: FDA-Public Use
  Company Number: GB-009507513-1207GBR013104

PATIENT

DRUGS (15)
  1. CALCIUM CARBONATE [Concomitant]
     Dosage: UNK
     Dates: start: 20120312, end: 20120511
  2. VISCOTEARS [Concomitant]
     Dosage: UNK
     Dates: start: 20120709, end: 20120716
  3. LANSOPRAZOLE [Concomitant]
     Dosage: UNK
     Dates: start: 20120510
  4. ZOCOR [Suspect]
     Dosage: UNK
     Route: 048
     Dates: start: 20120622
  5. FLUTICASONE PROPIONATE [Concomitant]
     Dosage: UNK
     Dates: start: 20120511, end: 20120512
  6. FLUTICASONE PROPIONATE [Concomitant]
     Dosage: UNK
     Dates: start: 20120711, end: 20120712
  7. AMOXICILLIN [Concomitant]
     Dosage: UNK
     Dates: start: 20120501, end: 20120508
  8. BUDESONIDE [Concomitant]
     Dosage: UNK
     Dates: start: 20120511, end: 20120512
  9. FINASTERIDE [Concomitant]
     Dosage: UNK
     Dates: start: 20120511, end: 20120608
  10. VENTOLIN [Concomitant]
     Dosage: UNK
     Dates: start: 20120511
  11. AMOXICILLIN [Concomitant]
     Dosage: UNK
     Dates: start: 20120622, end: 20120629
  12. BUDESONIDE [Concomitant]
     Dosage: UNK
     Dates: start: 20120711, end: 20120712
  13. DEXAMETHASONE [Concomitant]
     Dosage: UNK
     Dates: start: 20120622, end: 20120623
  14. TERAZOSIN HYDROCHLORIDE [Concomitant]
     Dosage: UNK
     Dates: start: 20120607, end: 20120705
  15. VISCOTEARS [Concomitant]
     Dosage: UNK
     Dates: start: 20120510, end: 20120517

REACTIONS (2)
  - CHEST DISCOMFORT [None]
  - DYSPNOEA [None]
